FAERS Safety Report 7472421-4 (Version None)
Quarter: 2011Q2

REPORT INFORMATION
  Report Type: 
  Country: None (occurrence: None)
  Receive Date: 20110511
  Receipt Date: 20110427
  Transmission Date: 20111010
  Serious: Yes (Other)
  Sender: FDA-Public Use
  Company Number: PHBS2007JP13638

PATIENT
  Age: 11 Year
  Sex: Female

DRUGS (9)
  1. CERTICAN [Suspect]
     Dosage: 0.25 MG/D
     Route: 048
  2. CERTICAN [Suspect]
     Dosage: 0.5 MG/D
     Route: 048
  3. PROGRAF [Concomitant]
  4. TACROLIMUS [Suspect]
     Indication: HEART TRANSPLANT
     Dosage: UNK
  5. ARTIST [Concomitant]
     Dosage: 12 MG,
     Route: 048
     Dates: start: 20080107
  6. CERTICAN [Suspect]
     Indication: HEART TRANSPLANT
     Dosage: 1 MG/D
     Route: 048
     Dates: start: 20070618
  7. ADRENERGIC DRUGS [Concomitant]
     Indication: HEART TRANSPLANT
     Dosage: UNK
  8. ANTIDIARRHOEAL DRUG [Concomitant]
  9. STEROIDS NOS [Concomitant]
     Dosage: UNK

REACTIONS (4)
  - HEART TRANSPLANT REJECTION [None]
  - RENAL IMPAIRMENT [None]
  - STOMATITIS [None]
  - HEPATIC FUNCTION ABNORMAL [None]
